FAERS Safety Report 6400960-3 (Version None)
Quarter: 2009Q4

REPORT INFORMATION
  Report Type: 
  Country: None (occurrence: None)
  Receive Date: 20091015
  Receipt Date: 20070509
  Transmission Date: 20100525
  Serious: Yes (Disabling)
  Sender: FDA-Public Use
  Company Number: US-ASTRAZENECA-2006UW27879

PATIENT
  Sex: Male
  Weight: 68.4 kg

DRUGS (14)
  1. SEROQUEL [Suspect]
     Dosage: 25 - 75 MG DAILY
     Route: 048
     Dates: start: 20000710
  2. PROZAC [Concomitant]
     Dosage: 10 - 20 MG DAILY
     Dates: start: 20010828
  3. RITALIN [Concomitant]
     Dosage: 20 - 30 MG DAILY
     Dates: start: 20011217
  4. THORAZINE [Concomitant]
     Dosage: 25 - 50 MG DAILY
     Dates: start: 20040412
  5. FOCALIN [Concomitant]
     Dosage: 5 - 20 MG AS REQUIRED
     Dates: start: 20030414
  6. SINGULAIR [Concomitant]
     Dates: start: 20030610
  7. ALLEGRA [Concomitant]
     Indication: HYPERSENSITIVITY
     Dates: start: 20011026
  8. ALLEGRA [Concomitant]
     Dates: start: 20020515
  9. HUMALOG [Concomitant]
     Dosage: 10 UNITS TWO TIMES A DAY
     Dates: start: 20010927
  10. HUMULIN R [Concomitant]
     Dosage: STRENGTH - 100 U/ML
     Dates: start: 20010927
  11. NOVOLOG [Concomitant]
     Dosage: STRENGTH - 100 U/ML, DOSE - 70 UNITS DAILY
     Route: 058
     Dates: start: 20070615
  12. LANTUS [Concomitant]
     Dosage: STRENGTH - 100 U/ML, DOSE - 52 - 76 UINITS DAILY
     Route: 058
     Dates: start: 20050908
  13. LEXAPRO [Concomitant]
     Dates: start: 20070615
  14. ADDERALL 10 [Concomitant]
     Dosage: 1 TAB IN MORNING AND AT LUNCH, AS REQUIRED IN AFTERNOON
     Dates: start: 20000330

REACTIONS (1)
  - ILL-DEFINED DISORDER [None]
